FAERS Safety Report 8839580 (Version 1)
Quarter: 2012Q4

REPORT INFORMATION
  Report Type: 
  Country: FR (occurrence: FR)
  Receive Date: 20121015
  Receipt Date: 20121015
  Transmission Date: 20130627
  Serious: Yes (Other)
  Sender: FDA-Public Use
  Company Number: PHHY2012FR069375

PATIENT
  Sex: Male
  Weight: 78 kg

DRUGS (9)
  1. TEGRETOL LP [Suspect]
     Indication: TRIGEMINAL NEURALGIA
     Dosage: 1 DF daily in the evening
     Route: 048
     Dates: start: 201205
  2. VERAPAMIL [Concomitant]
     Indication: FACIAL NEURALGIA
     Dosage: 240 mg, BID
     Dates: start: 201207
  3. FELDEN [Concomitant]
     Indication: PAIN
     Dosage: 10 mg to 20 mg daily
  4. TELFAST [Concomitant]
     Indication: HYPERSENSITIVITY
     Dosage: 180 mg, QD
  5. PARACETAMOL [Concomitant]
  6. TRYPTAN [Concomitant]
     Indication: MIGRAINE
  7. AVLOCARDYL [Concomitant]
  8. LESCOL [Concomitant]
  9. MOPRAL [Concomitant]

REACTIONS (11)
  - Amnesia [Recovering/Resolving]
  - Migraine [Recovering/Resolving]
  - Vasculitis [Recovering/Resolving]
  - Vascular purpura [Recovering/Resolving]
  - Diplopia [Recovering/Resolving]
  - Abdominal pain [Recovering/Resolving]
  - Vision blurred [Recovering/Resolving]
  - Rash [Recovering/Resolving]
  - Tinnitus [Recovering/Resolving]
  - Dry mouth [Recovering/Resolving]
  - Breath odour [Recovering/Resolving]
